FAERS Safety Report 9154018 (Version 2)
Quarter: 2013Q3

REPORT INFORMATION
  Report Type: Spontaneous
  Country: US (occurrence: None)
  Receive Date: 20130307
  Receipt Date: 20130716
  Transmission Date: 20140515
  Serious: Yes (Death, Life-Threatening)
  Sender: FDA-Public Use
  Company Number: ABR_00858_2013

PATIENT
  Age: 53 Year
  Sex: Female
  Weight: 44 kg

DRUGS (1)
  1. GLIADEL [Suspect]
     Indication: GLIOBLASTOMA MULTIFORME
     Dosage: 8 DF INTRACEREBRAL UNTIL NOT CONTINUING?

REACTIONS (3)
  - Sarcoma [None]
  - Soft tissue mass [None]
  - Second primary malignancy [None]
